FAERS Safety Report 7503879-X (Version None)
Quarter: 2011Q2

REPORT INFORMATION
  Report Type: 
  Country: None (occurrence: None)
  Receive Date: 20110525
  Receipt Date: 20110127
  Transmission Date: 20111010
  Serious: Yes (Hospitalization, Other)
  Sender: FDA-Public Use
  Company Number: US-BAYER-201028843NA

PATIENT
  Age: 20 Year
  Sex: Female
  Weight: 86.168 kg

DRUGS (8)
  1. HYDROCODONE [Concomitant]
  2. NUVARING [Concomitant]
     Dosage: UNK
     Dates: start: 20081017
  3. PROPRANOLOL [Concomitant]
     Dosage: UNK
     Dates: start: 20080101, end: 20090101
  4. YASMIN [Suspect]
     Indication: ACNE
     Dosage: UNK
     Dates: start: 20070501, end: 20080801
  5. YAZ [Suspect]
     Indication: ACNE
     Dosage: 1 TAB / DAY
  6. YASMIN [Suspect]
     Indication: CONTRACEPTION
  7. PERCOCET [Concomitant]
  8. DROSPIRENONE AND ETHINYL ESTRADIOL [Suspect]

REACTIONS (8)
  - ABDOMINAL PAIN UPPER [None]
  - CHOLELITHIASIS [None]
  - CHOLESTEROSIS [None]
  - BILIARY COLIC [None]
  - NAUSEA [None]
  - DIARRHOEA [None]
  - DEHYDRATION [None]
  - VOMITING [None]
